FAERS Safety Report 19650148 (Version 2)
Quarter: 2021Q3

REPORT INFORMATION
  Report Type: Spontaneous
  Country: PK (occurrence: PK)
  Receive Date: 20210803
  Receipt Date: 20210825
  Transmission Date: 20211014
  Serious: No
  Sender: FDA-Public Use
  Company Number: PK-LUPIN PHARMACEUTICALS INC.-2021-13473

PATIENT
  Age: 40 Year
  Sex: Female
  Weight: 78 kg

DRUGS (13)
  1. METOCLOPRAMIDE. [Suspect]
     Active Substance: METOCLOPRAMIDE
     Indication: ANAESTHETIC PREMEDICATION
     Dosage: 10 MILLIGRAM
     Route: 042
     Dates: start: 20180505
  2. PROPOFOL. [Suspect]
     Active Substance: PROPOFOL
     Indication: INDUCTION OF ANAESTHESIA
     Dosage: UNK
     Route: 065
     Dates: start: 20180505
  3. SODIUM CITRATE ACID [Suspect]
     Active Substance: DISODIUM HYDROGEN CITRATE
     Indication: ANAESTHETIC PREMEDICATION
     Dosage: UNK
     Route: 065
     Dates: start: 20180505
  4. GLYCOPYRROLATE. [Suspect]
     Active Substance: GLYCOPYRROLATE
     Indication: ANAESTHETIC PREMEDICATION
     Dosage: 0.2 MILLIGRAM
     Route: 042
     Dates: start: 20180505
  5. LIGNOCAINE [Suspect]
     Active Substance: LIDOCAINE HYDROCHLORIDE
     Indication: LOCAL ANAESTHESIA
     Dosage: 3 MILLILITER (4 PERCENT)
     Route: 061
     Dates: start: 20180505
  6. ATRACURIUM [Suspect]
     Active Substance: ATRACURIUM
     Indication: MUSCLE RELAXANT THERAPY
     Dosage: UNK
     Route: 065
     Dates: start: 20180505
  7. RANITIDINE. [Suspect]
     Active Substance: RANITIDINE
     Indication: ANAESTHETIC PREMEDICATION
     Dosage: 50 MILLIGRAM
     Route: 042
     Dates: start: 20180505
  8. PARACETAMOL [Suspect]
     Active Substance: ACETAMINOPHEN
     Indication: ANALGESIC THERAPY
     Dosage: UNK
     Route: 065
     Dates: start: 20180505
  9. MORPHINE [Suspect]
     Active Substance: MORPHINE
     Indication: ANALGESIC THERAPY
     Dosage: UNK
     Route: 065
     Dates: start: 20180505
  10. LIGNOCAINE [Suspect]
     Active Substance: LIDOCAINE HYDROCHLORIDE
     Dosage: 2 MILLILITER (4 PERCENT)
     Route: 061
     Dates: start: 20180505
  11. LIGNOCAINE [Suspect]
     Active Substance: LIDOCAINE HYDROCHLORIDE
     Dosage: 1 MILLILITER (4 PERCENT)
     Route: 061
     Dates: start: 20180505
  12. XYLOMETAZOLINE [Suspect]
     Active Substance: XYLOMETAZOLINE
     Indication: ANAESTHETIC PREMEDICATION
     Dosage: UNK IN 1:1000 RATION
     Route: 045
     Dates: start: 20180505
  13. GLYCOPYRROLATE. [Suspect]
     Active Substance: GLYCOPYRROLATE
     Dosage: 0.5 MILLIGRAM
     Route: 042
     Dates: start: 20180505

REACTIONS (1)
  - Maternal exposure during pregnancy [Unknown]

NARRATIVE: CASE EVENT DATE: 20180505
